FAERS Safety Report 21691415 (Version 1)
Quarter: 2022Q4

REPORT INFORMATION
  Report Type: Spontaneous
  Country: US (occurrence: US)
  Receive Date: 20221207
  Receipt Date: 20221207
  Transmission Date: 20230112
  Serious: Yes (Hospitalization, Other)
  Sender: FDA-Public Use
  Company Number: US-GLENMARK PHARMACEUTICALS-2022GMK076893

PATIENT
  Age: 24 Year
  Sex: Female

DRUGS (1)
  1. SEVELAMER HYDROCHLORIDE [Suspect]
     Active Substance: SEVELAMER HYDROCHLORIDE
     Indication: End stage renal disease
     Dosage: UNK
     Route: 065

REACTIONS (3)
  - Enterococcal infection [Unknown]
  - Peritonitis bacterial [Unknown]
  - Colitis [Unknown]
